FAERS Safety Report 5729340-0 (Version None)
Quarter: 2008Q2

REPORT INFORMATION
  Report Type: 
  Country: None (occurrence: None)
  Receive Date: 20080506
  Receipt Date: 20080424
  Transmission Date: 20081010
  Serious: Yes (Other)
  Sender: FDA-Public Use
  Company Number: US-PFIZER INC-2008036947

PATIENT
  Sex: Female
  Weight: 79.4 kg

DRUGS (14)
  1. LYRICA [Suspect]
     Indication: NEURALGIA
     Dates: start: 20080422, end: 20080423
  2. FENTANYL [Concomitant]
  3. SEROQUEL [Concomitant]
  4. BENADRYL [Concomitant]
  5. SOMA [Concomitant]
  6. AMBIEN [Concomitant]
  7. LORAZEPAM [Concomitant]
  8. OXYCODONE HCL [Concomitant]
  9. NORVASC [Concomitant]
  10. LEXAPRO [Concomitant]
  11. AMITRIPTLINE HCL [Concomitant]
  12. ALL OTHER THERAPEUTIC PRODUCTS [Concomitant]
  13. ALBUTEROL [Concomitant]
  14. TYLENOL [Concomitant]

REACTIONS (3)
  - DIZZINESS [None]
  - FALL [None]
  - TREMOR [None]
